FAERS Safety Report 19081622 (Version 1)
Quarter: 2021Q1

REPORT INFORMATION
  Report Type: Spontaneous
  Country: JP (occurrence: JP)
  Receive Date: 20210331
  Receipt Date: 20210331
  Transmission Date: 20210420
  Serious: Yes (Hospitalization)
  Sender: FDA-Public Use
  Company Number: JP-ASTRAZENECA-2021A209728

PATIENT
  Age: 75 Year
  Sex: Male

DRUGS (1)
  1. BUDESONIDE,GLYCOPYRRONIUM BROMIDE,FORMOTEROL FUMARATE HYDRATE [Suspect]
     Active Substance: BUDESONIDE\FORMOTEROL\GLYCOPYRRONIUM
     Indication: CHRONIC OBSTRUCTIVE PULMONARY DISEASE
     Dosage: DOSE UNKNOWN
     Route: 055

REACTIONS (4)
  - Dyspnoea [Unknown]
  - Productive cough [Unknown]
  - Cough [Unknown]
  - Malaise [Unknown]
